FAERS Safety Report 4533764-7 (Version None)
Quarter: 2004Q4

REPORT INFORMATION
  Report Type: 
  Country: None (occurrence: None)
  Receive Date: 20041206
  Receipt Date: 20040928
  Transmission Date: 20050328
  Serious: No
  Sender: FDA-Public Use
  Company Number: USA040979467

PATIENT
  Age: 3 Year
  Sex: Male
  Weight: 64 kg

DRUGS (4)
  1. CYMBALTA [Suspect]
     Indication: DEPRESSION
     Dosage: 30 MG/1 IN THE EVENING
     Dates: start: 20040924
  2. KLONOPIN [Concomitant]
  3. ACCUPRIL [Concomitant]
  4. LIPITOR [Concomitant]

REACTIONS (1)
  - NAUSEA [None]
